FAERS Safety Report 7432229-2 (Version None)
Quarter: 2011Q2

REPORT INFORMATION
  Report Type: 
  Country: None (occurrence: None)
  Receive Date: 20110422
  Receipt Date: 20110406
  Transmission Date: 20111010
  Serious: No
  Sender: FDA-Public Use
  Company Number: US-B.I. PHARMACEUTICALS,INC./RIDGEFIELD-2011-BP-10178BP

PATIENT
  Sex: Male

DRUGS (10)
  1. TOPROL-XL [Concomitant]
     Dosage: 100 MG
  2. CRESTOR [Concomitant]
     Indication: BLOOD CHOLESTEROL INCREASED
     Dosage: 20 MG
  3. MVIT [Concomitant]
  4. CALCIUM [Concomitant]
  5. ALDACTONE [Concomitant]
     Indication: HYPERTENSION
     Dosage: 25 MG
  6. PREVACID [Concomitant]
     Indication: GASTROOESOPHAGEAL REFLUX DISEASE
     Dosage: 30 MG
  7. COZAAR [Concomitant]
     Indication: HYPERTENSION
     Dosage: 25 MG
  8. LASIX [Concomitant]
     Indication: CARDIAC FAILURE CONGESTIVE
     Dosage: 20 MG
  9. PRADAXA [Suspect]
     Indication: ATRIAL FIBRILLATION
     Dosage: 300 MG
     Route: 048
     Dates: start: 20110201
  10. MOBIC [Concomitant]
     Indication: OSTEOARTHRITIS
     Dosage: 15 MG

REACTIONS (13)
  - HEADACHE [None]
  - HYPERHIDROSIS [None]
  - HAEMOGLOBIN DECREASED [None]
  - ELECTROCARDIOGRAM T WAVE ABNORMAL [None]
  - DYSPNOEA [None]
  - NAUSEA [None]
  - BLOOD ALBUMIN ABNORMAL [None]
  - FEELING ABNORMAL [None]
  - FATIGUE [None]
  - PALPITATIONS [None]
  - CHEST DISCOMFORT [None]
  - HAEMATOCRIT DECREASED [None]
  - ELECTROCARDIOGRAM QRS COMPLEX ABNORMAL [None]
